FAERS Safety Report 5034608-X (Version None)
Quarter: 2006Q2

REPORT INFORMATION
  Report Type: 
  Country: None (occurrence: None)
  Receive Date: 20060621
  Receipt Date: 20060613
  Transmission Date: 20061013
  Serious: Yes (Other)
  Sender: FDA-Public Use
  Company Number: GXKR2006JP03353

PATIENT
  Age: 81 Year
  Sex: Female

DRUGS (1)
  1. ISONIAZID [Suspect]
     Indication: TUBERCULOSIS

REACTIONS (5)
  - FLUSHING [None]
  - FOOD INTERACTION [None]
  - FOOD POISONING [None]
  - PALPITATIONS [None]
  - PRURITUS [None]
